FAERS Safety Report 5953918-2 (Version None)
Quarter: 2008Q4

REPORT INFORMATION
  Report Type: 
  Country: None (occurrence: None)
  Receive Date: 20081114
  Receipt Date: 20081104
  Transmission Date: 20090506
  Serious: Yes (Hospitalization)
  Sender: FDA-Public Use
  Company Number: FR-PFIZER INC-2008087989

PATIENT
  Sex: Female

DRUGS (6)
  1. TRIFLUCAN [Suspect]
     Indication: OESOPHAGEAL CANDIDIASIS
     Route: 048
     Dates: start: 20080711, end: 20080715
  2. FUNGIZONE [Suspect]
     Indication: OESOPHAGEAL CANDIDIASIS
     Route: 048
     Dates: start: 20080626, end: 20080713
  3. FUNGIZONE [Suspect]
     Indication: HEPATITIS ALCOHOLIC
  4. VALIUM [Suspect]
     Indication: ALCOHOL WITHDRAWAL SYNDROME
     Route: 048
  5. CREON [Suspect]
     Route: 048
     Dates: start: 20080712, end: 20080715
  6. VALIUM [Concomitant]
     Dosage: DAILY DOSE:15MG

REACTIONS (1)
  - CYTOLYTIC HEPATITIS [None]
